FAERS Safety Report 18364970 (Version 1)
Quarter: 2020Q4

REPORT INFORMATION
  Report Type: Spontaneous
  Country: US (occurrence: US)
  Receive Date: 20201009
  Receipt Date: 20201009
  Transmission Date: 20210114
  Serious: Yes (Hospitalization)
  Sender: FDA-Public Use
  Company Number: US-HORIZON-RAV-0318-2020

PATIENT
  Age: 22 Year
  Sex: Female

DRUGS (3)
  1. CITRULLINE [Concomitant]
     Active Substance: CITRULLINE
  2. RAVICTI [Suspect]
     Active Substance: GLYCEROL PHENYLBUTYRATE
     Indication: ORNITHINE TRANSCARBAMOYLASE DEFICIENCY
     Dosage: 4.9ML THREE TIMES DAILY VIA G-TUBE
     Dates: start: 201509
  3. SODIUM BENZOATE [Concomitant]
     Active Substance: SODIUM BENZOATE

REACTIONS (4)
  - Nausea [Recovered/Resolved]
  - Ammonia increased [Recovered/Resolved]
  - Vomiting [Recovered/Resolved]
  - Gastrooesophageal reflux disease [Recovered/Resolved]

NARRATIVE: CASE EVENT DATE: 202009
